FAERS Safety Report 4396356-9 (Version None)
Quarter: 2004Q3

REPORT INFORMATION
  Report Type: 
  Country: None (occurrence: None)
  Receive Date: 20040709
  Receipt Date: 20040630
  Transmission Date: 20050211
  Serious: Yes (Death, Hospitalization)
  Sender: FDA-Public Use
  Company Number: BRO-007593

PATIENT
  Age: 86 Year
  Sex: Female

DRUGS (2)
  1. IOPAMIDOL [Suspect]
     Indication: COMPUTERISED TOMOGRAM ABDOMEN
     Dosage: 90 ML IV
     Route: 042
     Dates: start: 20040223, end: 20040223
  2. IOPAMIDOL [Suspect]
     Indication: HEPATIC CANCER METASTATIC
     Dosage: 90 ML IV
     Route: 042
     Dates: start: 20040223, end: 20040223

REACTIONS (2)
  - HEPATIC FAILURE [None]
  - RENAL IMPAIRMENT [None]
